FAERS Safety Report 9516649 (Version 2)
Quarter: 2014Q1

REPORT INFORMATION
  Report Type: Report from Study
  Country: KR (occurrence: KR)
  Receive Date: 20130911
  Receipt Date: 20140311
  Transmission Date: 20141002
  Serious: Yes (Death, Life-Threatening, Hospitalization)
  Sender: FDA-Public Use
  Company Number: KR-GLAXOSMITHKLINE-B0921869A

PATIENT
  Age: 81 Year
  Sex: Male

DRUGS (1)
  1. HYCAMTIN [Suspect]
     Indication: SMALL CELL LUNG CANCER
     Dosage: 2.5MG PER DAY
     Route: 048
     Dates: start: 20121117, end: 20130204

REACTIONS (3)
  - Neutropenia [Recovered/Resolved]
  - Thrombocytopenia [Recovered/Resolved]
  - Pneumonia aspiration [Fatal]
